FAERS Safety Report 4731095-3 (Version None)
Quarter: 2005Q3

REPORT INFORMATION
  Report Type: 
  Country: None (occurrence: None)
  Receive Date: 20050726
  Receipt Date: 20040518
  Transmission Date: 20060218
  Serious: Yes (Other)
  Sender: FDA-Public Use
  Company Number: 04GER0059

PATIENT

DRUGS (1)
  1. AGGRASTAT [Suspect]
     Dosage: INJECTION
     Dates: start: 20040510, end: 20040510

REACTIONS (1)
  - THROMBOCYTOPENIA [None]
